FAERS Safety Report 24192512 (Version 1)
Quarter: 2024Q3

REPORT INFORMATION
  Report Type: Spontaneous
  Country: CA (occurrence: CA)
  Receive Date: 20240809
  Receipt Date: 20240809
  Transmission Date: 20241017
  Serious: Yes (Other)
  Sender: TEVA
  Company Number: CA-TEVA-VS-3227683

PATIENT
  Sex: Female

DRUGS (13)
  1. CEFADROXIL [Suspect]
     Active Substance: CEFADROXIL
     Indication: Cellulitis
     Route: 065
  2. NIVOLUMAB [Concomitant]
     Active Substance: NIVOLUMAB
     Indication: Metastatic neoplasm
     Dosage: DOSAGE FORM: SOLUTION INTRAVENOUS
     Route: 065
  3. NIVOLUMAB [Concomitant]
     Active Substance: NIVOLUMAB
     Indication: Metastatic neoplasm
     Route: 065
  4. NIVOLUMAB [Concomitant]
     Active Substance: NIVOLUMAB
     Indication: Metastatic neoplasm
     Route: 065
  5. NIVOLUMAB [Concomitant]
     Active Substance: NIVOLUMAB
     Indication: Metastatic neoplasm
     Route: 065
  6. MOXIFLOXACIN HYDROCHLORIDE [Suspect]
     Active Substance: MOXIFLOXACIN HYDROCHLORIDE\MOXIFLOXACIN HYDROCHLORIDE MONOHYDRATE
     Indication: Pneumonia
     Route: 065
  7. DURVALUMAB [Concomitant]
     Active Substance: DURVALUMAB
     Indication: Metastatic neoplasm
     Route: 065
  8. DURVALUMAB [Concomitant]
     Active Substance: DURVALUMAB
     Indication: Metastatic neoplasm
     Route: 065
  9. LEVOFLOXACIN HEMIHYDRATE [Suspect]
     Active Substance: LEVOFLOXACIN
     Indication: Pneumonia
     Route: 065
  10. IPILIMUMAB [Concomitant]
     Active Substance: IPILIMUMAB
     Indication: Metastatic neoplasm
     Route: 065
  11. IPILIMUMAB [Concomitant]
     Active Substance: IPILIMUMAB
     Indication: Metastatic neoplasm
     Route: 065
  12. TRAMETINIB [Concomitant]
     Active Substance: TRAMETINIB
     Indication: Metastatic neoplasm
     Route: 065
  13. AMOXICILLIN AND CLAVULANATE POTASSIUM [Suspect]
     Active Substance: AMOXICILLIN\CLAVULANATE POTASSIUM
     Indication: Pneumonia
     Route: 065

REACTIONS (3)
  - Metastatic malignant melanoma [Recovering/Resolving]
  - Neoplasm progression [Recovering/Resolving]
  - Gastrointestinal disorder [Recovering/Resolving]
